FAERS Safety Report 4744551-9 (Version None)
Quarter: 2005Q3

REPORT INFORMATION
  Report Type: 
  Country: None (occurrence: None)
  Receive Date: 20050812
  Receipt Date: 20050804
  Transmission Date: 20060218
  Serious: Yes (Hospitalization)
  Sender: FDA-Public Use
  Company Number: FR-ABBOTT-05P-056-0307526-00

PATIENT
  Age: 46 Year
  Sex: Female

DRUGS (4)
  1. DEPAKENE [Suspect]
     Indication: SUICIDE ATTEMPT
     Route: 048
     Dates: start: 20050705, end: 20050705
  2. CLOBAZAM [Suspect]
     Indication: SUICIDE ATTEMPT
     Route: 048
     Dates: start: 20050705, end: 20050705
  3. CLONAZEPAM [Suspect]
     Indication: SUICIDE ATTEMPT
     Dosage: 50 MG OD
     Route: 061
     Dates: start: 20050705, end: 20050705
  4. PRAZEPAM [Concomitant]
     Indication: DRUG USE FOR UNKNOWN INDICATION
     Route: 048

REACTIONS (13)
  - AGITATION [None]
  - BLOOD PRESSURE INCREASED [None]
  - BRADYPHRENIA [None]
  - DRUG LEVEL INCREASED [None]
  - HYPOTONIA [None]
  - INTENTIONAL MISUSE [None]
  - MALAISE [None]
  - MIOSIS [None]
  - MULTIPLE DRUG OVERDOSE [None]
  - OVERDOSE [None]
  - SOMNOLENCE [None]
  - SUICIDAL IDEATION [None]
  - SUICIDE ATTEMPT [None]
